FAERS Safety Report 5871898-5 (Version None)
Quarter: 2008Q3

REPORT INFORMATION
  Report Type: 
  Country: None (occurrence: None)
  Receive Date: 20080905
  Receipt Date: 20080826
  Transmission Date: 20090109
  Serious: Yes (Hospitalization)
  Sender: FDA-Public Use
  Company Number: FR-BAYER-200825168GPV

PATIENT
  Age: 82 Year
  Sex: Male

DRUGS (2)
  1. CIPROFLOXACIN HYDROCHLORIDE [Suspect]
     Indication: DRUG USE FOR UNKNOWN INDICATION
     Dosage: UNIT DOSE: 250 MG
     Route: 048
     Dates: start: 20080602
  2. CIPROFLOXACIN HYDROCHLORIDE [Suspect]
     Route: 048
     Dates: start: 20080706, end: 20080708

REACTIONS (2)
  - PETECHIAE [None]
  - VASCULAR PURPURA [None]
